FAERS Safety Report 14359416 (Version 1)
Quarter: 2018Q1

REPORT INFORMATION
  Report Type: Spontaneous
  Country: US (occurrence: US)
  Receive Date: 20180105
  Receipt Date: 20180105
  Transmission Date: 20180509
  Serious: No
  Sender: FDA-Public Use
  Company Number: US-SA-2017SA199082

PATIENT
  Sex: Male

DRUGS (2)
  1. ZANTAC [Suspect]
     Active Substance: RANITIDINE HYDROCHLORIDE
     Route: 065
  2. ZANTAC [Suspect]
     Active Substance: RANITIDINE HYDROCHLORIDE
     Dosage: FREQUENCY-NEEDED IT TWICE/DAY RECENTLY, AND HAVE TAKEN A DOUBLE DOSE EVEN ON CERTAIN DAYS
     Route: 065

REACTIONS (2)
  - Extra dose administered [Unknown]
  - Inappropriate schedule of drug administration [Unknown]
